FAERS Safety Report 6235666-7 (Version None)
Quarter: 2009Q2

REPORT INFORMATION
  Report Type: 
  Country: None (occurrence: None)
  Receive Date: 20090616
  Receipt Date: 20090604
  Transmission Date: 20091009
  Serious: Yes (Hospitalization)
  Sender: FDA-Public Use
  Company Number: 233486K09USA

PATIENT
  Age: 49 Year
  Sex: Female

DRUGS (3)
  1. REBIF [Suspect]
     Indication: MULTIPLE SCLEROSIS
     Dosage: 44 MCG, 3 IN 1 WEEKS, SUBCUTANEOUS
     Route: 058
     Dates: start: 20090120, end: 20090326
  2. KLONOPIN [Concomitant]
  3. PAXIL [Concomitant]

REACTIONS (12)
  - ANXIETY [None]
  - CONDITION AGGRAVATED [None]
  - CRYING [None]
  - DEHYDRATION [None]
  - DEPRESSED MOOD [None]
  - DEPRESSION [None]
  - MENTAL STATUS CHANGES [None]
  - NECK PAIN [None]
  - PAIN [None]
  - PRODUCT QUALITY ISSUE [None]
  - STRESS [None]
  - VOMITING [None]
